FAERS Safety Report 14379826 (Version 10)
Quarter: 2020Q1

REPORT INFORMATION
  Report Type: Spontaneous
  Country: US (occurrence: US)
  Receive Date: 20180112
  Receipt Date: 20200331
  Transmission Date: 20200409
  Serious: Yes (Other)
  Sender: FDA-Public Use
  Company Number: US-PFIZER INC-2018007841

PATIENT
  Age: 74 Year
  Sex: Female
  Weight: 45 kg

DRUGS (3)
  1. IBRANCE [Suspect]
     Active Substance: PALBOCICLIB
     Indication: BREAST CANCER METASTATIC
     Dosage: 75 MG, 1X/DAY
     Route: 048
     Dates: start: 20171207, end: 20171220
  2. AROMASIN [Concomitant]
     Active Substance: EXEMESTANE
     Dosage: UNK
  3. IBRANCE [Suspect]
     Active Substance: PALBOCICLIB
     Dosage: 75 MG, CYCLIC (75 MG, 21 DAYS ON, 7 DAYS OFF)
     Route: 048

REACTIONS (13)
  - Herpes zoster [Recovering/Resolving]
  - Headache [Unknown]
  - Gait disturbance [Unknown]
  - Pain [Unknown]
  - Red blood cell count decreased [Unknown]
  - Hypoacusis [Unknown]
  - White blood cell count decreased [Recovering/Resolving]
  - Muscle strain [Unknown]
  - Tumour marker increased [Unknown]
  - Blood count abnormal [Unknown]
  - Fatigue [Unknown]
  - Haemoglobin decreased [Recovering/Resolving]
  - Rash [Recovering/Resolving]

NARRATIVE: CASE EVENT DATE: 201712
